FAERS Safety Report 9421851 (Version 1)
Quarter: 2013Q3

REPORT INFORMATION
  Report Type: Report from Study
  Country: GB (occurrence: GB)
  Receive Date: 20130726
  Receipt Date: 20130726
  Transmission Date: 20140515
  Serious: Yes (Hospitalization)
  Sender: FDA-Public Use
  Company Number: GB-ROCHE-1253125

PATIENT
  Age: 64 Year
  Sex: Male

DRUGS (8)
  1. BEVACIZUMAB [Suspect]
     Indication: GASTRIC CANCER
     Dosage: LAST DOSE PRIOR TO SAE : 31/MAY/2013
     Route: 042
     Dates: start: 20130510
  2. CAPECITABINE [Suspect]
     Indication: GASTRIC CANCER
     Dosage: LAST DOSE PRIOR TO SAE : 31/MAY/2013
     Route: 048
     Dates: start: 20130510
  3. EPIRUBICIN [Suspect]
     Indication: GASTRIC CANCER
     Dosage: LAST DOSE PRIOR TO SAE : 31/MAY/2013
     Route: 042
     Dates: start: 20130510
  4. CISPLATIN [Suspect]
     Indication: GASTRIC CANCER
     Dosage: LAST DOSE PRIOR TO SAE : 31/MAY/2013
     Route: 042
     Dates: start: 20130510
  5. SIMVASTATIN [Concomitant]
     Route: 048
  6. HALOPERIDOL [Concomitant]
     Route: 048
     Dates: start: 201305
  7. OMEPRAZOL [Concomitant]
     Route: 048
  8. CYCLIZINE [Concomitant]
     Route: 048
     Dates: start: 201305

REACTIONS (1)
  - Dysphagia [Recovered/Resolved]
